FAERS Safety Report 23851909 (Version 3)
Quarter: 2024Q3

REPORT INFORMATION
  Report Type: Report from Study
  Country: US (occurrence: US)
  Receive Date: 20240514
  Receipt Date: 20240909
  Transmission Date: 20241017
  Serious: No
  Sender: DECIPHERA PHARMACEUTICALS
  Company Number: US-DECIPHERA PHARMACEUTICALS LLC-2024US000427

PATIENT
  Age: 65 Year
  Sex: Female
  Weight: 60.9 kg

DRUGS (2)
  1. QINLOCK [Suspect]
     Active Substance: RIPRETINIB
     Indication: Neuroendocrine tumour
     Dosage: 150 MILLIGRAM, QD
     Route: 048
     Dates: start: 20240126
  2. QINLOCK [Suspect]
     Active Substance: RIPRETINIB
     Dosage: 50 MILLIGRAM, QD
     Route: 048

REACTIONS (8)
  - Decreased appetite [Unknown]
  - Sleep disorder [Unknown]
  - Pain [Unknown]
  - Alopecia [Unknown]
  - Nausea [Unknown]
  - Weight decreased [Unknown]
  - Underdose [Unknown]
  - Product use in unapproved indication [Unknown]

NARRATIVE: CASE EVENT DATE: 20240101
